FAERS Safety Report 10143440 (Version 1)
Quarter: 2014Q2

REPORT INFORMATION
  Report Type: Spontaneous
  Country: US (occurrence: US)
  Receive Date: 20140430
  Receipt Date: 20140430
  Transmission Date: 20141212
  Serious: No
  Sender: FDA-Public Use
  Company Number: US-GILEAD-2014-0100669

PATIENT
  Age: 63 Year
  Sex: Female

DRUGS (8)
  1. LETAIRIS [Suspect]
     Indication: PULMONARY HYPERTENSION
     Dosage: 5 MG, QD
     Route: 065
     Dates: start: 20140327, end: 20140406
  2. LETAIRIS [Suspect]
     Dates: start: 20140325
  3. COUMADIN                           /00014802/ [Concomitant]
  4. TYLENOL ARTHRITIS [Concomitant]
  5. MICARDIS [Concomitant]
  6. LEVOTHYROXINE [Concomitant]
  7. HYDROCHLOROTHIAZIDE [Concomitant]
  8. CHOLESTYRAMINE [Concomitant]

REACTIONS (2)
  - Oedema peripheral [Unknown]
  - Swelling face [Unknown]
